FAERS Safety Report 7300719-9 (Version None)
Quarter: 2011Q1

REPORT INFORMATION
  Report Type: 
  Country: None (occurrence: None)
  Receive Date: 20110207
  Receipt Date: 20110121
  Transmission Date: 20110831
  Serious: Yes (Other)
  Sender: FDA-Public Use
  Company Number: AUR-APL-2011-00308

PATIENT
  Age: 54 Year
  Sex: Female

DRUGS (5)
  1. METFORMIN 500 MG FILM-COATED TABLETS [Suspect]
     Indication: DIABETES MELLITUS
     Dosage: 500MG-DAILY-ORAL
     Route: 048
     Dates: start: 20101021, end: 20101104
  2. COUMADIN [Suspect]
     Indication: ATRIAL FIBRILLATION
     Dosage: 22500MCG-WEEKLY-PO
     Route: 048
     Dates: start: 20100320, end: 20101104
  3. LASIX [Concomitant]
  4. VASORETIC (ENALAPRIL + HYDROCHLOROTHIAZIDE) [Concomitant]
  5. LANOXIN [Concomitant]

REACTIONS (1)
  - INTERNATIONAL NORMALISED RATIO DECREASED [None]
